FAERS Safety Report 11106565 (Version 1)
Quarter: 2015Q2

REPORT INFORMATION
  Report Type: Spontaneous
  Country: US (occurrence: US)
  Receive Date: 20150512
  Receipt Date: 20150512
  Transmission Date: 20150821
  Serious: Yes (Death, Hospitalization)
  Sender: FDA-Public Use
  Company Number: US-NOVOPROD-448542

PATIENT
  Age: 79 Year
  Sex: Male

DRUGS (3)
  1. VICTOZA [Suspect]
     Active Substance: LIRAGLUTIDE
     Dosage: 0.6 MG, TID (WITH MEAL)
     Route: 058
     Dates: start: 201411, end: 201411
  2. VICTOZA [Suspect]
     Active Substance: LIRAGLUTIDE
     Indication: TYPE 2 DIABETES MELLITUS
     Dosage: 0.3 MG, TID (WITH MEAL)
     Route: 058
     Dates: start: 201411, end: 201411
  3. LEVEMIR [Concomitant]
     Active Substance: INSULIN DETEMIR
     Indication: TYPE 2 DIABETES MELLITUS
     Dosage: 15 U, UNK
     Route: 058

REACTIONS (2)
  - Pancreatic carcinoma [Fatal]
  - Off label use [Unknown]

NARRATIVE: CASE EVENT DATE: 201411
